FAERS Safety Report 9483704 (Version 1)
Quarter: 2013Q3

REPORT INFORMATION
  Report Type: Report from Study
  Country: CA (occurrence: CA)
  Receive Date: 20130828
  Receipt Date: 20130828
  Transmission Date: 20140515
  Serious: Yes (Hospitalization)
  Sender: FDA-Public Use
  Company Number: CA-JNJFOC-20130814129

PATIENT
  Sex: Male
  Weight: 68.04 kg

DRUGS (2)
  1. REMICADE [Suspect]
     Indication: CROHN^S DISEASE
     Dosage: DOUBLED HIS DOSE TO 7 VIALS
     Route: 042
     Dates: start: 2013
  2. REMICADE [Suspect]
     Indication: CROHN^S DISEASE
     Route: 042
     Dates: start: 2012

REACTIONS (3)
  - Intestinal obstruction [Unknown]
  - Gastrointestinal disorder [Unknown]
  - Weight increased [Unknown]
